FAERS Safety Report 8137918-2 (Version None)
Quarter: 2012Q1

REPORT INFORMATION
  Report Type: 
  Country: None (occurrence: None)
  Receive Date: 20120215
  Receipt Date: 20120203
  Transmission Date: 20120608
  Serious: Yes (Hospitalization, Other)
  Sender: FDA-Public Use
  Company Number: DE-ELI_LILLY_AND_COMPANY-DE201202001403

PATIENT
  Sex: Female

DRUGS (1)
  1. CYMBALTA [Suspect]
     Indication: DEPRESSION
     Dosage: 60 MG, UNK
     Route: 048
     Dates: start: 20111001, end: 20111128

REACTIONS (5)
  - LOCAL SWELLING [None]
  - ERYTHEMA [None]
  - UPPER RESPIRATORY TRACT INFECTION [None]
  - SWELLING FACE [None]
  - OEDEMA PERIPHERAL [None]
